FAERS Safety Report 5704199-6 (Version None)
Quarter: 2008Q2

REPORT INFORMATION
  Report Type: 
  Country: None (occurrence: None)
  Receive Date: 20080414
  Receipt Date: 20080402
  Transmission Date: 20081010
  Serious: Yes (Hospitalization)
  Sender: FDA-Public Use
  Company Number: IT-TEVA-169658ISR

PATIENT
  Age: 27 Year
  Sex: Female

DRUGS (6)
  1. CARBAMAZEPINE [Suspect]
     Indication: AGITATION
  2. CARBAMAZEPINE [Suspect]
     Indication: PSYCHOTIC DISORDER
  3. VALPROIC ACID [Suspect]
     Indication: AGITATION
  4. VALPROIC ACID [Suspect]
     Indication: PSYCHOTIC DISORDER
  5. LEVOSULPIRIDE [Suspect]
     Indication: AGITATION
  6. LEVOSULPIRIDE [Suspect]
     Indication: PSYCHOTIC DISORDER

REACTIONS (1)
  - MYXOEDEMA COMA [None]
